FAERS Safety Report 18337966 (Version 1)
Quarter: 2020Q3

REPORT INFORMATION
  Report Type: Spontaneous
  Country: US (occurrence: US)
  Receive Date: 20200930
  Receipt Date: 20200930
  Transmission Date: 20201103
  Serious: Yes (Hospitalization)
  Sender: FDA-Public Use
  Company Number: None

PATIENT
  Age: 64 Year
  Sex: Female

DRUGS (30)
  1. AMOX/K CLAV [Concomitant]
     Active Substance: AMOXICILLIN\CLAVULANATE POTASSIUM
  2. NYSTOP [Concomitant]
     Active Substance: NYSTATIN
  3. POT CL MICRO [Concomitant]
  4. PREDNISONE. [Concomitant]
     Active Substance: PREDNISONE
  5. CLOTIM/BETA [Concomitant]
  6. FUROSEMIDE. [Concomitant]
     Active Substance: FUROSEMIDE
  7. SMZ/TMP [Concomitant]
     Active Substance: SULFAMETHOXAZOLE\TRIMETHOPRIM
  8. ESBRIET [Suspect]
     Active Substance: PIRFENIDONE
     Indication: IDIOPATHIC PULMONARY FIBROSIS
     Route: 048
     Dates: start: 20181130
  9. DOXYCYCL HYC [Concomitant]
  10. GABAPENTIN. [Concomitant]
     Active Substance: GABAPENTIN
  11. PANTOPRAZOLE [Concomitant]
     Active Substance: PANTOPRAZOLE
  12. SPIRONOLACT [Concomitant]
     Active Substance: SPIRONOLACTONE
  13. AZITHROMYCIN ANHYDROUS. [Concomitant]
     Active Substance: AZITHROMYCIN ANHYDROUS
  14. CEFDINIR. [Concomitant]
     Active Substance: CEFDINIR
  15. CETIRIZINE [Concomitant]
     Active Substance: CETIRIZINE HYDROCHLORIDE
  16. JANUVIA [Concomitant]
     Active Substance: SITAGLIPTIN PHOSPHATE
  17. METOPROL SUC [Concomitant]
  18. NYSTATIN. [Concomitant]
     Active Substance: NYSTATIN
  19. OMEPRAZOLE. [Concomitant]
     Active Substance: OMEPRAZOLE
  20. BENZONATATE. [Concomitant]
     Active Substance: BENZONATATE
  21. FAMOTIDINE. [Concomitant]
     Active Substance: FAMOTIDINE
  22. INSULIN LISP [Concomitant]
  23. IPRATROPIUM [Concomitant]
     Active Substance: IPRATROPIUM
  24. ISOSORB DIN [Concomitant]
  25. LEVOCETIRIZI [Concomitant]
  26. TRAMADOL HCL [Concomitant]
     Active Substance: TRAMADOL HYDROCHLORIDE
  27. AUG BETAMET [Concomitant]
  28. DOFETILIDE. [Concomitant]
     Active Substance: DOFETILIDE
  29. ENTRESTO [Concomitant]
     Active Substance: SACUBITRIL\VALSARTAN
  30. HYD POL/CPM [Concomitant]

REACTIONS (1)
  - Dyspnoea [None]

NARRATIVE: CASE EVENT DATE: 20200831
